FAERS Safety Report 14599667 (Version 2)
Quarter: 2018Q1

REPORT INFORMATION
  Report Type: Spontaneous
  Country: PL (occurrence: PL)
  Receive Date: 20180305
  Receipt Date: 20180320
  Transmission Date: 20180509
  Serious: Yes (Other)
  Sender: FDA-Public Use
  Company Number: PL-ELI_LILLY_AND_COMPANY-PL201802012086

PATIENT
  Age: 57 Year
  Sex: Male

DRUGS (11)
  1. ZOLPIDEM [Interacting]
     Active Substance: ZOLPIDEM\ZOLPIDEM TARTRATE
     Indication: SLEEP DISORDER
  2. MIANSERIN [Interacting]
     Active Substance: MIANSERIN
     Indication: NIGHTMARE
  3. METFORMIN [Interacting]
     Active Substance: METFORMIN HYDROCHLORIDE
     Indication: INSOMNIA
     Dosage: UNK, UNKNOWN
     Route: 065
  4. DIAZEPAM. [Interacting]
     Active Substance: DIAZEPAM
     Indication: NIGHTMARE
  5. ZOLPIDEM [Interacting]
     Active Substance: ZOLPIDEM\ZOLPIDEM TARTRATE
     Indication: INSOMNIA
     Dosage: 10 MG, EACH EVENING
     Route: 048
  6. MIANSERIN [Interacting]
     Active Substance: MIANSERIN
     Indication: ABNORMAL DREAMS
  7. DIAZEPAM. [Interacting]
     Active Substance: DIAZEPAM
     Indication: ABNORMAL DREAMS
  8. METFORMIN [Interacting]
     Active Substance: METFORMIN HYDROCHLORIDE
     Indication: TYPE 2 DIABETES MELLITUS
  9. FLUOXETINE HYDROCHLORIDE. [Suspect]
     Active Substance: FLUOXETINE HYDROCHLORIDE
     Indication: FIBROMYALGIA
     Dosage: 40 MG, DAILY
     Route: 048
  10. DIAZEPAM. [Interacting]
     Active Substance: DIAZEPAM
     Indication: INITIAL INSOMNIA
     Dosage: 10 MG, DAILY
     Route: 065
  11. MIANSERIN [Interacting]
     Active Substance: MIANSERIN
     Indication: INSOMNIA
     Dosage: 20 MG, EACH EVENING
     Route: 065

REACTIONS (10)
  - Initial insomnia [Recovered/Resolved]
  - Drug interaction [Unknown]
  - Off label use [Recovered/Resolved]
  - Dry mouth [Recovering/Resolving]
  - Somnolence [Recovered/Resolved]
  - Impaired self-care [Unknown]
  - Sleep disorder [Recovered/Resolved]
  - Blood glucose fluctuation [Recovering/Resolving]
  - Poor quality sleep [Recovered/Resolved]
  - Nightmare [Recovered/Resolved]
